FAERS Safety Report 9643069 (Version 1)
Quarter: 2013Q4

REPORT INFORMATION
  Report Type: Spontaneous
  Country: US (occurrence: None)
  Receive Date: 20131023
  Receipt Date: 20131023
  Transmission Date: 20140711
  Serious: Yes (Hospitalization)
  Sender: FDA-Public Use
  Company Number: None

PATIENT
  Age: 63 Year
  Sex: Male
  Weight: 97.5 kg

DRUGS (1)
  1. ENOXAPARIN (GENERIC) [Suspect]
     Indication: PULMONARY EMBOLISM
     Route: 058
     Dates: start: 20130924, end: 20131002

REACTIONS (4)
  - Anticoagulation drug level below therapeutic [None]
  - Disease progression [None]
  - Pulmonary embolism [None]
  - Underdose [None]
